FAERS Safety Report 8990415 (Version 2)
Quarter: 2013Q1

REPORT INFORMATION
  Report Type: Spontaneous
  Country: US (occurrence: US)
  Receive Date: 20121228
  Receipt Date: 20130207
  Transmission Date: 20140127
  Serious: Yes (Other)
  Sender: FDA-Public Use
  Company Number: US-JNJFOC-20121209410

PATIENT
  Sex: Female

DRUGS (3)
  1. STELARA [Suspect]
     Indication: PSORIASIS
     Route: 058
     Dates: start: 201011, end: 20121212
  2. LIDEX [Concomitant]
     Dosage: TWICE DAILY PRN
     Route: 065
  3. HYDROCORTISONE [Concomitant]
     Dosage: TWICE DAILY PRN
     Route: 065

REACTIONS (1)
  - Autoimmune hepatitis [Unknown]
